FAERS Safety Report 22083088 (Version 1)
Quarter: 2023Q1

REPORT INFORMATION
  Report Type: Spontaneous
  Country: BR (occurrence: BR)
  Receive Date: 20230310
  Receipt Date: 20230310
  Transmission Date: 20230417
  Serious: Yes (Other)
  Sender: FDA-Public Use
  Company Number: BR-ASPEN-GLO2023BR000880

PATIENT

DRUGS (4)
  1. LEUKERAN [Suspect]
     Active Substance: CHLORAMBUCIL
     Indication: Chronic lymphocytic leukaemia
     Dosage: 2 MG, 3 DOSE DAILY
     Route: 048
     Dates: start: 20230207
  2. LEUKERAN [Suspect]
     Active Substance: CHLORAMBUCIL
     Dosage: 2 MG, 2 DOSE DAILY
     Route: 048
     Dates: start: 20230214, end: 20230221
  3. RIVOTRIL [Concomitant]
     Active Substance: CLONAZEPAM
     Indication: Anxiety
     Dosage: 2.5 MG, 1 DOSE DAILY,7 DROPS
     Route: 048
  4. ALPRAZOLAM [Concomitant]
     Active Substance: ALPRAZOLAM
     Indication: Anxiety
     Dosage: 0.75 MG, 1 DOSE DAILY,1 TABLET A DAY
     Route: 048

REACTIONS (13)
  - Intentional product use issue [Unknown]
  - Treatment noncompliance [Unknown]
  - Polychromasia [Not Recovered/Not Resolved]
  - Elliptocytosis [Not Recovered/Not Resolved]
  - Anisocytosis [Not Recovered/Not Resolved]
  - Poikilocytosis [Not Recovered/Not Resolved]
  - Leukopenia [Not Recovered/Not Resolved]
  - Red blood cell schistocytes present [Not Recovered/Not Resolved]
  - Heart rate irregular [Not Recovered/Not Resolved]
  - Feeling of body temperature change [Not Recovered/Not Resolved]
  - Abdominal pain [Not Recovered/Not Resolved]
  - Apathy [Unknown]
  - Asthenia [Unknown]

NARRATIVE: CASE EVENT DATE: 20230207
